FAERS Safety Report 13585401 (Version 1)
Quarter: 2017Q2

REPORT INFORMATION
  Report Type: Spontaneous
  Country: BE (occurrence: BE)
  Receive Date: 20170526
  Receipt Date: 20170526
  Transmission Date: 20170830
  Serious: Yes (Hospitalization)
  Sender: FDA-Public Use
  Company Number: BE-IPSEN BIOPHARMACEUTICALS, INC.-2017-04256

PATIENT
  Age: 38 Year
  Sex: Male

DRUGS (2)
  1. SOMATULINE AUTOGEL INJECTABLE 120MG [Suspect]
     Active Substance: LANREOTIDE ACETATE
     Indication: ACROMEGALY
     Dosage: 120 MG
     Route: 058
     Dates: start: 20160225
  2. PEGVISOMANT [Concomitant]
     Active Substance: PEGVISOMANT

REACTIONS (5)
  - Pruritus [Unknown]
  - Chills [Recovering/Resolving]
  - Tension headache [Recovered/Resolved]
  - Pyrexia [Recovering/Resolving]
  - Leukopenia [Unknown]

NARRATIVE: CASE EVENT DATE: 201705
